FAERS Safety Report 7172332-8 (Version None)
Quarter: 2010Q4

REPORT INFORMATION
  Report Type: 
  Country: None (occurrence: None)
  Receive Date: 20101217
  Receipt Date: 20100205
  Transmission Date: 20110411
  Serious: No
  Sender: FDA-Public Use
  Company Number: US-AMGEN-TCS391004

PATIENT

DRUGS (1)
  1. ENBREL [Suspect]
     Indication: RHEUMATOID ARTHRITIS
     Dosage: 50 MG, QWK
     Route: 058
     Dates: start: 20030725

REACTIONS (10)
  - COUGH [None]
  - DIZZINESS [None]
  - EAR DISORDER [None]
  - HEADACHE [None]
  - HYPERSENSITIVITY [None]
  - NAUSEA [None]
  - PAIN IN EXTREMITY [None]
  - RHINORRHOEA [None]
  - SINUSITIS [None]
  - SNEEZING [None]
